FAERS Safety Report 4761446-5 (Version None)
Quarter: 2005Q3

REPORT INFORMATION
  Report Type: 
  Country: None (occurrence: None)
  Receive Date: 20050906
  Receipt Date: 20050826
  Transmission Date: 20060218
  Serious: Yes (Other)
  Sender: FDA-Public Use
  Company Number: PHBS2005BR12775

PATIENT
  Age: 53 Year
  Sex: Female

DRUGS (3)
  1. OCTREOTIDE ACETATE [Suspect]
     Indication: ACROMEGALY
     Dosage: 50 UG, TID
     Route: 065
  2. OCTREOTIDE ACETATE [Suspect]
     Dosage: 250 UG, QID
     Route: 065
  3. OCTREOTIDE ACETATE [Suspect]
     Dosage: 800 UG/DAY
     Route: 065

REACTIONS (3)
  - DRUG TOLERANCE [None]
  - DRUG WITHDRAWAL SYNDROME [None]
  - HEADACHE [None]
